FAERS Safety Report 5139100-X (Version None)
Quarter: 2006Q4

REPORT INFORMATION
  Report Type: 
  Country: None (occurrence: None)
  Receive Date: 20061030
  Receipt Date: 20060621
  Transmission Date: 20070319
  Serious: No
  Sender: FDA-Public Use
  Company Number: US-GLAXOSMITHKLINE-A0609850A

PATIENT
  Age: 79 Year
  Sex: Male

DRUGS (8)
  1. ADVAIR HFA [Suspect]
     Indication: BRONCHITIS
     Dosage: 1PUFF TWICE PER DAY
     Route: 055
     Dates: start: 20050101, end: 20060609
  2. BENAZEPRIL HYDROCHLORIDE [Suspect]
     Dosage: 10MG PER DAY
     Route: 065
     Dates: start: 20060401
  3. SINGULAIR [Concomitant]
  4. COMBIVENT [Concomitant]
  5. AVODART [Concomitant]
  6. HYTRIN [Concomitant]
  7. ZETIA [Concomitant]
  8. METHOTREXATE [Concomitant]

REACTIONS (4)
  - ADVERSE EVENT [None]
  - COUGH [None]
  - DYSPHONIA [None]
  - INCREASED UPPER AIRWAY SECRETION [None]
